FAERS Safety Report 23980384 (Version 2)
Quarter: 2025Q2

REPORT INFORMATION
  Report Type: Spontaneous
  Country: GB (occurrence: GB)
  Receive Date: 20240617
  Receipt Date: 20250411
  Transmission Date: 20250717
  Serious: Yes (Other)
  Sender: JOHNSON AND JOHNSON
  Company Number: GB-MHRA-MED-202406141652194760-YCPSQ

PATIENT
  Age: 47 Year
  Sex: Female

DRUGS (1)
  1. RILPIVIRINE [Suspect]
     Active Substance: RILPIVIRINE
     Indication: HIV infection
     Route: 065
     Dates: start: 20240227

REACTIONS (2)
  - Medication error [Unknown]
  - Abscess [Recovered/Resolved]

NARRATIVE: CASE EVENT DATE: 20240322
